FAERS Safety Report 19502144 (Version 2)
Quarter: 2021Q3

REPORT INFORMATION
  Report Type: Spontaneous
  Country: US (occurrence: US)
  Receive Date: 20210707
  Receipt Date: 20210820
  Transmission Date: 20211014
  Serious: No
  Sender: FDA-Public Use
  Company Number: US-PFIZER INC-2021672766

PATIENT
  Age: 3 Year

DRUGS (2)
  1. GENOTROPIN [Suspect]
     Active Substance: SOMATROPIN
     Dosage: 0.6 MG(0.4MG ALTERNATING WITH 0.6MG)
     Dates: start: 20210519
  2. GENOTROPIN [Suspect]
     Active Substance: SOMATROPIN
     Dosage: 0.4 MG(0.4MG ALTERNATING WITH 0.6MG)
     Dates: start: 20210519

REACTIONS (1)
  - Device mechanical issue [Unknown]
